FAERS Safety Report 8442113-3 (Version None)
Quarter: 2012Q2

REPORT INFORMATION
  Report Type: 
  Country: None (occurrence: None)
  Receive Date: 20120615
  Receipt Date: 20120314
  Transmission Date: 20120825
  Serious: No
  Sender: FDA-Public Use
  Company Number: US-NOVEN-12US004299

PATIENT
  Sex: Male
  Weight: 17.234 kg

DRUGS (3)
  1. CLONIDINE [Concomitant]
     Indication: ANXIETY
     Dosage: 0.1 MG, UNK
     Route: 048
  2. DAYTRANA [Suspect]
     Indication: ATTENTION DEFICIT/HYPERACTIVITY DISORDER
     Dosage: 10 MG, QD
     Route: 062
     Dates: start: 20111001
  3. CLONIDINE [Concomitant]
     Indication: INSOMNIA

REACTIONS (4)
  - DRUG INEFFECTIVE [None]
  - DRUG ADMINISTRATION ERROR [None]
  - PRODUCT QUALITY ISSUE [None]
  - OFF LABEL USE [None]
